FAERS Safety Report 5097464-X (Version None)
Quarter: 2006Q3

REPORT INFORMATION
  Report Type: 
  Country: None (occurrence: None)
  Receive Date: 20060901
  Receipt Date: 20060815
  Transmission Date: 20061208
  Serious: Yes (Hospitalization, Other)
  Sender: FDA-Public Use
  Company Number: US200512000823

PATIENT
  Age: 44 Year
  Sex: Female
  Weight: 90.7 kg

DRUGS (6)
  1. ZYPREXA [Suspect]
     Indication: BIPOLAR DISORDER
     Dosage: 10 MG
     Dates: start: 19980301, end: 20050401
  2. SEROQUEL [Concomitant]
  3. RISPERIDONE [Concomitant]
  4. LITHIUM (LITHIUM) [Concomitant]
  5. VENLAFAXENE (VENLAFAXINE) [Concomitant]
  6. METOPROLOL (METOPROLOL) [Concomitant]

REACTIONS (7)
  - BLOOD TRIGLYCERIDES INCREASED [None]
  - CARDIAC DISORDER [None]
  - DIABETES MELLITUS NON-INSULIN-DEPENDENT [None]
  - HYPOGLYCAEMIA [None]
  - THROMBOSIS [None]
  - VISION BLURRED [None]
  - WEIGHT INCREASED [None]
